FAERS Safety Report 9180190 (Version 1)
Quarter: 2013Q1

REPORT INFORMATION
  Report Type: Spontaneous
  Country: GB (occurrence: GB)
  Receive Date: 20130321
  Receipt Date: 20130321
  Transmission Date: 20140127
  Serious: Yes (Other)
  Sender: FDA-Public Use
  Company Number: PHHY2013GB025820

PATIENT
  Age: 17 Year
  Sex: Female

DRUGS (2)
  1. DEXAMETHASONE [Suspect]
  2. CARBOXYMETHYLCELLULOSE SODIUM [Concomitant]

REACTIONS (5)
  - Nikolsky^s sign [Unknown]
  - Symblepharon [Recovering/Resolving]
  - Mucocutaneous ulceration [Unknown]
  - Conjunctivitis [Recovered/Resolved]
  - Corneal epithelium defect [Recovered/Resolved]
